FAERS Safety Report 23765828 (Version 3)
Quarter: 2024Q2

REPORT INFORMATION
  Report Type: Spontaneous
  Country: CL (occurrence: CL)
  Receive Date: 20240421
  Receipt Date: 20240624
  Transmission Date: 20240715
  Serious: Yes (Disabling)
  Sender: FDA-Public Use
  Company Number: CL-PFIZER INC-PV202400045893

PATIENT
  Sex: Female

DRUGS (1)
  1. ENBREL [Suspect]
     Active Substance: BENZYL ALCOHOL\ETANERCEPT
     Indication: Product used for unknown indication
     Dosage: UNK
     Route: 065

REACTIONS (8)
  - Mobility decreased [Unknown]
  - Deformity [Unknown]
  - Arthritis [Unknown]
  - Osteoarthritis [Unknown]
  - Device difficult to use [Unknown]
  - Device mechanical issue [Unknown]
  - Exposure via skin contact [Unknown]
  - Accidental exposure to product [Unknown]

NARRATIVE: CASE EVENT DATE: 20240401
